FAERS Safety Report 18449796 (Version 2)
Quarter: 2020Q4

REPORT INFORMATION
  Report Type: Spontaneous
  Country: JP (occurrence: JP)
  Receive Date: 20201030
  Receipt Date: 20201111
  Transmission Date: 20210114
  Serious: Yes (Other)
  Sender: FDA-Public Use
  Company Number: JP-PFIZER INC-2020385068

PATIENT
  Age: 63 Year
  Sex: Female

DRUGS (6)
  1. CARBOQUONE [Concomitant]
     Active Substance: CARBOQUONE
  2. MEDROXYPROGESTERONE ACETATE. [Suspect]
     Active Substance: MEDROXYPROGESTERONE ACETATE
     Dosage: 600 MG, DAILY
     Route: 048
  3. MEDROXYPROGESTERONE ACETATE. [Suspect]
     Active Substance: MEDROXYPROGESTERONE ACETATE
     Indication: BREAST CANCER
     Dosage: 200 MG
     Route: 048
  4. TEGAFUR/URACIL [Concomitant]
     Active Substance: TEGAFUR\URACIL
  5. MEDROXYPROGESTERONE ACETATE. [Suspect]
     Active Substance: MEDROXYPROGESTERONE ACETATE
     Dosage: 1200 MG, DAILY
     Route: 048
  6. MECOBALAMIN [Concomitant]
     Active Substance: METHYLCOBALAMIN

REACTIONS (4)
  - Depressed level of consciousness [Recovered/Resolved with Sequelae]
  - Visual field defect [Recovered/Resolved with Sequelae]
  - Cerebral venous sinus thrombosis [Recovered/Resolved with Sequelae]
  - Headache [Recovered/Resolved with Sequelae]
